FAERS Safety Report 8172920-6 (Version None)
Quarter: 2012Q1

REPORT INFORMATION
  Report Type: 
  Country: None (occurrence: None)
  Receive Date: 20120223
  Receipt Date: 20120210
  Transmission Date: 20120608
  Serious: Yes (Death, Life-Threatening, Hospitalization, Other)
  Sender: FDA-Public Use
  Company Number: 2009AL004284

PATIENT
  Age: 74 Year
  Sex: Male
  Weight: 81.1939 kg

DRUGS (14)
  1. LIPITOR [Concomitant]
  2. NITROGLYCERIN [Concomitant]
  3. TOPROL-XL [Concomitant]
  4. PLAVIX [Concomitant]
  5. MUCOMYST [Concomitant]
  6. LORAZEPAM [Concomitant]
  7. PROTONIX [Concomitant]
  8. PEPCID [Concomitant]
  9. LOTREL [Concomitant]
  10. PREVACID [Concomitant]
  11. ASPIRIN [Concomitant]
  12. DIGOXIN [Suspect]
     Indication: PRODUCT USED FOR UNKNOWN INDICATION
     Dosage: PO
     Route: 048
     Dates: start: 20020101, end: 20070101
  13. LOVENOX [Concomitant]
  14. VIOXX [Concomitant]

REACTIONS (42)
  - ANXIETY [None]
  - CHRONIC OBSTRUCTIVE PULMONARY DISEASE [None]
  - CORONARY ARTERY DISEASE [None]
  - ACIDOSIS [None]
  - HYPOKALAEMIA [None]
  - RESPIRATORY FAILURE [None]
  - PRODUCTIVE COUGH [None]
  - SUBCLAVIAN VEIN THROMBOSIS [None]
  - SINUS BRADYCARDIA [None]
  - MULTIPLE INJURIES [None]
  - CARDIOMEGALY [None]
  - DYSPNOEA [None]
  - CARDIAC ARREST [None]
  - INTERNATIONAL NORMALISED RATIO INCREASED [None]
  - AORTIC VALVE INCOMPETENCE [None]
  - CORONARY ARTERY OCCLUSION [None]
  - WHITE BLOOD CELL COUNT INCREASED [None]
  - PULMONARY HYPERTENSION [None]
  - CHEST DISCOMFORT [None]
  - OEDEMA PERIPHERAL [None]
  - RENAL FAILURE ACUTE [None]
  - ECCHYMOSIS [None]
  - AORTIC STENOSIS [None]
  - HYPOAESTHESIA [None]
  - HYPERCHOLESTEROLAEMIA [None]
  - BLOOD POTASSIUM ABNORMAL [None]
  - RASH [None]
  - MITRAL VALVE CALCIFICATION [None]
  - PERICARDIAL EFFUSION [None]
  - ECONOMIC PROBLEM [None]
  - CHEST PAIN [None]
  - ANGINA PECTORIS [None]
  - HYPOTENSION [None]
  - METABOLIC ACIDOSIS [None]
  - HYPOXIA [None]
  - MITRAL VALVE INCOMPETENCE [None]
  - TRICUSPID VALVE INCOMPETENCE [None]
  - HYPERTENSION [None]
  - COUGH [None]
  - PROTHROMBIN TIME PROLONGED [None]
  - ISCHAEMIC HEPATITIS [None]
  - MYOCARDIAL INFARCTION [None]
